FAERS Safety Report 14580788 (Version 4)
Quarter: 2019Q1

REPORT INFORMATION
  Report Type: Report from Study
  Country: NL (occurrence: NL)
  Receive Date: 20180228
  Receipt Date: 20190121
  Transmission Date: 20190417
  Serious: Yes (Death, Hospitalization)
  Sender: FDA-Public Use
  Company Number: NL-ROCHE-2078380

PATIENT
  Age: 66 Year
  Sex: Female

DRUGS (2)
  1. ATEZOLIZUMAB. [Suspect]
     Active Substance: ATEZOLIZUMAB
     Indication: BREAST CANCER METASTATIC
     Dosage: MOST RECENT DOSE ON 01/FEB/2018
     Route: 042
     Dates: start: 20171228
  2. CARBOPLATIN. [Suspect]
     Active Substance: CARBOPLATIN
     Indication: BREAST CANCER METASTATIC
     Dosage: MOST RECENT DOSE ON 08/FEB/2018, 15/FEB/2018 176 MG
     Route: 042
     Dates: start: 20171228

REACTIONS (2)
  - Ascites [Fatal]
  - Hypotension [Fatal]

NARRATIVE: CASE EVENT DATE: 20180218
